FAERS Safety Report 4630817-X (Version None)
Quarter: 2005Q2

REPORT INFORMATION
  Report Type: 
  Country: None (occurrence: None)
  Receive Date: 20050408
  Receipt Date: 20050321
  Transmission Date: 20051028
  Serious: Yes (Other)
  Sender: FDA-Public Use
  Company Number: FR-ROCHE-400863

PATIENT
  Age: 75 Year
  Sex: Male

DRUGS (6)
  1. KYTRIL [Suspect]
     Indication: CHEMOTHERAPY
     Route: 065
  2. SOLU-MEDROL [Suspect]
     Indication: CHEMOTHERAPY
     Route: 065
  3. FLUOROURACIL [Concomitant]
     Indication: CHEMOTHERAPY
  4. OXALIPLATIN [Concomitant]
     Indication: CHEMOTHERAPY
  5. LEUCOVORIN CALCIUM [Concomitant]
     Indication: CHEMOTHERAPY
  6. IRINOTECAN HCL [Concomitant]

REACTIONS (2)
  - RECTAL HAEMORRHAGE [None]
  - THROMBOCYTOPENIA [None]
